FAERS Safety Report 6506705-0 (Version None)
Quarter: 2009Q4

REPORT INFORMATION
  Report Type: 
  Country: None (occurrence: None)
  Receive Date: 20091216
  Receipt Date: 20091203
  Transmission Date: 20100525
  Serious: Yes (Hospitalization)
  Sender: FDA-Public Use
  Company Number: 233433J09USA

PATIENT
  Age: 33 Year
  Sex: Female
  Weight: 60 kg

DRUGS (20)
  1. REBIF [Suspect]
     Indication: MULTIPLE SCLEROSIS
     Dosage: 44 MCG, 3 IN 1 WEEKS, SUBCUTANEOUS; 22 MCG, 3 IN 1 WEEKS, SUBCUTANEOUS
     Route: 058
     Dates: start: 20080204, end: 20090101
  2. REBIF [Suspect]
     Indication: MULTIPLE SCLEROSIS
     Dosage: 44 MCG, 3 IN 1 WEEKS, SUBCUTANEOUS; 22 MCG, 3 IN 1 WEEKS, SUBCUTANEOUS
     Route: 058
     Dates: start: 20090101
  3. ADVAIR INHALER (SERETIDE) [Concomitant]
  4. ALBUTEROL INHALER (SALBUTAMOL /00139501/) [Concomitant]
  5. TYLENOL ARTHRITIS PAIN (PARACETAMOL) [Concomitant]
  6. SINGULAIR [Concomitant]
  7. DUONEB [Concomitant]
  8. NASONEX [Concomitant]
  9. ALLEGRA [Concomitant]
  10. DEPO-PROVERA [Concomitant]
  11. ADDERALL XR (OBETROL /01345401/) [Concomitant]
  12. TOPAMAX [Concomitant]
  13. RELPAX [Concomitant]
  14. BACLOFEN [Concomitant]
  15. CELEXA [Concomitant]
  16. NEXIUM [Concomitant]
  17. EQUETRO [Concomitant]
  18. RESTORIL [Concomitant]
  19. LACTOBACILLUS ACIDOPHILIS (LACTOBACILLUS ACIDOPHILUS) [Concomitant]
  20. VALIUM [Concomitant]

REACTIONS (6)
  - CONDITION AGGRAVATED [None]
  - INJECTION SITE HAEMORRHAGE [None]
  - MIGRAINE [None]
  - PNEUMONIA [None]
  - PULMONARY EMBOLISM [None]
  - TOOTH DISORDER [None]
